FAERS Safety Report 25951946 (Version 2)
Quarter: 2025Q4

REPORT INFORMATION
  Report Type: Spontaneous
  Country: EU (occurrence: EU)
  Receive Date: 20251023
  Receipt Date: 20251211
  Transmission Date: 20260118
  Serious: Yes (Death)
  Sender: AMGEN
  Company Number: EU-AMGEN-AUTSP2025169247

PATIENT
  Sex: Male

DRUGS (4)
  1. LUMAKRAS [Suspect]
     Active Substance: SOTORASIB
     Indication: Colorectal cancer metastatic
     Dosage: UNK, QD (DAILY)
     Route: 065
     Dates: start: 20250808, end: 20250822
  2. LUMAKRAS [Suspect]
     Active Substance: SOTORASIB
     Indication: K-ras gene mutation
  3. VECTIBIX [Suspect]
     Active Substance: PANITUMUMAB
     Indication: Colorectal cancer metastatic
     Dosage: UNK
     Route: 065
     Dates: start: 20250808
  4. VECTIBIX [Suspect]
     Active Substance: PANITUMUMAB
     Indication: K-ras gene mutation

REACTIONS (3)
  - Colorectal cancer metastatic [Fatal]
  - Fatigue [Unknown]
  - Rash [Unknown]
